FAERS Safety Report 10573240 (Version 1)
Quarter: 2014Q4

REPORT INFORMATION
  Report Type: Spontaneous
  Country: US (occurrence: None)
  Receive Date: 20141107
  Receipt Date: 20141107
  Transmission Date: 20150529
  Serious: Yes (Other)
  Sender: FDA-Public Use
  Company Number: None

PATIENT
  Age: 66 Year
  Sex: Male
  Weight: 111.59 kg

DRUGS (1)
  1. QUINAPRIL HYDROCHLORIDE/HYDROCHLOROTHIAZIDE [Suspect]
     Active Substance: HYDROCHLOROTHIAZIDE\QUINAPRIL HYDROCHLORIDE
     Indication: BLOOD PRESSURE
     Dosage: 1 PILL
     Route: 048
     Dates: start: 20141004, end: 20141017

REACTIONS (4)
  - Drug hypersensitivity [None]
  - Sunburn [None]
  - Swelling face [None]
  - Rash pruritic [None]

NARRATIVE: CASE EVENT DATE: 20141006
